FAERS Safety Report 15525969 (Version 2)
Quarter: 2018Q4

REPORT INFORMATION
  Report Type: Report from Study
  Country: FR (occurrence: FR)
  Receive Date: 20181018
  Receipt Date: 20181024
  Transmission Date: 20190205
  Serious: Yes (Death, Hospitalization)
  Sender: FDA-Public Use
  Company Number: FR-ROCHE-2199777

PATIENT
  Age: 78 Year
  Sex: Female

DRUGS (18)
  1. DOXORUBICIN [Suspect]
     Active Substance: DOXORUBICIN
     Indication: OVARIAN EPITHELIAL CANCER RECURRENT
     Dosage: LAST DOSE OF DOXORUBICIN WAS RECEIVED  BEFORE THE EVENT ON 19/MAR/2018
     Route: 042
     Dates: start: 20171031, end: 20180319
  2. LEVOTHYROX [Concomitant]
     Active Substance: LEVOTHYROXINE
  3. BEVACIZUMAB. [Suspect]
     Active Substance: BEVACIZUMAB
     Indication: OVARIAN EPITHELIAL CANCER RECURRENT
     Dosage: LAST DOSE OF BEVACIZUMAB WAS RECEIVED  BEFORE THE EVENT ON 19/MAR/2018?LOADING DOSE (10 MG/KG)
     Route: 042
     Dates: start: 20171031, end: 20180319
  4. TAHOR [Concomitant]
     Active Substance: ATORVASTATIN CALCIUM
  5. CARBOPLATIN. [Suspect]
     Active Substance: CARBOPLATIN
     Indication: MALIGNANT PERITONEAL NEOPLASM
  6. BLINDED ATEZOLIZUMAB [Suspect]
     Active Substance: ATEZOLIZUMAB
     Indication: FALLOPIAN TUBE CANCER
     Dosage: MAINTENANCE DOSE
     Route: 042
     Dates: start: 20171031
  7. DOXORUBICIN [Suspect]
     Active Substance: DOXORUBICIN
     Indication: FALLOPIAN TUBE CANCER
     Route: 042
  8. DOXORUBICIN [Suspect]
     Active Substance: DOXORUBICIN
     Indication: MALIGNANT PERITONEAL NEOPLASM
  9. BEVACIZUMAB. [Suspect]
     Active Substance: BEVACIZUMAB
     Indication: FALLOPIAN TUBE CANCER
     Dosage: MAINTENANCE DOSE
     Route: 042
     Dates: start: 20171031
  10. BEVACIZUMAB. [Suspect]
     Active Substance: BEVACIZUMAB
     Indication: MALIGNANT PERITONEAL NEOPLASM
  11. HYPERIUM [Concomitant]
     Active Substance: RILMENIDINE PHOSPHATE
  12. BLINDED ATEZOLIZUMAB [Suspect]
     Active Substance: ATEZOLIZUMAB
     Indication: MALIGNANT PERITONEAL NEOPLASM
  13. CARBOPLATIN. [Suspect]
     Active Substance: CARBOPLATIN
     Indication: FALLOPIAN TUBE CANCER
  14. AMLOR [Concomitant]
     Active Substance: AMLODIPINE BESYLATE
  15. CELECTOL [Concomitant]
     Active Substance: CELIPROLOL HYDROCHLORIDE
  16. BLINDED ATEZOLIZUMAB [Suspect]
     Active Substance: ATEZOLIZUMAB
     Indication: OVARIAN EPITHELIAL CANCER RECURRENT
     Dosage: LAST DOSE OF ATEZOLIZUMAB WAS RECEIVED  BEFORE THE EVENT ON 19/MAR/2018?LOADING DOSE
     Route: 042
     Dates: start: 20171031, end: 20180319
  17. CARBOPLATIN. [Suspect]
     Active Substance: CARBOPLATIN
     Indication: OVARIAN EPITHELIAL CANCER RECURRENT
     Dosage: LAST DOSE OF CARBOPLATIN WAS RECEIVED  BEFORE THE EVENT ON 19/MAR/2018?AUC-5
     Route: 042
     Dates: start: 20171031, end: 20180319
  18. KARDEGIC [Concomitant]
     Active Substance: ASPIRIN DL-LYSINE

REACTIONS (2)
  - Pulmonary embolism [Fatal]
  - Bronchitis [Fatal]

NARRATIVE: CASE EVENT DATE: 20180328
